FAERS Safety Report 6334811-2 (Version None)
Quarter: 2009Q3

REPORT INFORMATION
  Report Type: 
  Country: None (occurrence: None)
  Receive Date: 20090831
  Receipt Date: 20090819
  Transmission Date: 20100115
  Serious: Yes (Death)
  Sender: FDA-Public Use
  Company Number: US-TYCO HEALTHCARE/MALLINCKRODT-T200901569

PATIENT
  Sex: Female

DRUGS (2)
  1. ULTRA-TECHNEKOW [Suspect]
     Dosage: UNK
     Dates: start: 20090720, end: 20090720
  2. TECHNETIUM TC 99M SULFUR COLLOID [Suspect]
     Dosage: UNK
     Dates: start: 20090720, end: 20090720

REACTIONS (1)
  - POST PROCEDURAL INFECTION [None]
